FAERS Safety Report 12766425 (Version 1)
Quarter: 2016Q3

REPORT INFORMATION
  Report Type: Spontaneous
  Country: CN (occurrence: CN)
  Receive Date: 20160921
  Receipt Date: 20160921
  Transmission Date: 20161109
  Serious: Yes (Death)
  Sender: FDA-Public Use
  Company Number: PHHY2016CN129402

PATIENT
  Age: 77 Year
  Sex: Male

DRUGS (1)
  1. ACLASTA [Suspect]
     Active Substance: ZOLEDRONIC ACID
     Indication: OSTEOPOROSIS
     Dosage: 5 MG, ONCE/SINGLE
     Route: 065
     Dates: start: 20160912, end: 20160912

REACTIONS (3)
  - Pyrexia [Fatal]
  - Electrolyte imbalance [Fatal]
  - Thrombosis [Fatal]
